FAERS Safety Report 6804805-9 (Version None)
Quarter: 2010Q2

REPORT INFORMATION
  Report Type: 
  Country: None (occurrence: None)
  Receive Date: 20100628
  Receipt Date: 20100617
  Transmission Date: 20101027
  Serious: Yes (Death)
  Sender: FDA-Public Use
  Company Number: US-ROCHE-710663

PATIENT
  Age: 66 Year

DRUGS (1)
  1. ACTEMRA [Suspect]
     Indication: DRUG USE FOR UNKNOWN INDICATION
     Dosage: PATIENT RECEIVED 03 DOSES
     Route: 065
     Dates: end: 20100610

REACTIONS (1)
  - DEATH [None]
